FAERS Safety Report 8634503 (Version 3)
Quarter: 2012Q4

REPORT INFORMATION
  Report Type: 
  Country: BR (occurrence: BR)
  Receive Date: 20120626
  Receipt Date: 20120831
  Transmission Date: 20130627
  Serious: Yes (Other)
  Sender: FDA-Public Use
  Company Number: BR-PFIZER INC-2012149848

PATIENT
  Age: 49 Year
  Sex: Female
  Weight: 80 kg

DRUGS (3)
  1. PRISTIQ [Suspect]
     Indication: DEPRESSION
     Dosage: 50 mg, UNK
     Route: 048
     Dates: start: 2009
  2. PRISTIQ [Suspect]
     Dosage: 100 mg, daily
     Route: 048
     Dates: start: 20120308
  3. RIVOTRIL [Concomitant]
     Dosage: 20 Gtt, daily

REACTIONS (6)
  - Obesity [Unknown]
  - Weight increased [Not Recovered/Not Resolved]
  - Hyperhidrosis [Not Recovered/Not Resolved]
  - Emotional disorder [Unknown]
  - Self esteem decreased [Unknown]
  - Feeling abnormal [Unknown]
